FAERS Safety Report 4536469-1 (Version None)
Quarter: 2004Q4

REPORT INFORMATION
  Report Type: 
  Country: None (occurrence: None)
  Receive Date: 20041220
  Receipt Date: 20041203
  Transmission Date: 20050328
  Serious: Yes (Hospitalization)
  Sender: FDA-Public Use
  Company Number: A03200404095

PATIENT
  Age: 72 Year
  Sex: Female
  Weight: 71.4 kg

DRUGS (14)
  1. PLAVIX [Suspect]
     Indication: MYOCARDIAL ISCHAEMIA
     Dosage: 75 MG QD - ORAL
     Route: 048
  2. ASPIRIN [Suspect]
     Indication: MYOCARDIAL ISCHAEMIA
     Dosage: ORAL
     Route: 048
  3. LOVENOX [Suspect]
     Indication: ACUTE CORONARY SYNDROME
     Dosage: 40 MG QD - SUBCUTANEOUS
     Route: 058
     Dates: start: 20041115, end: 20041101
  4. LOVENOX [Suspect]
     Indication: MYOCARDIAL ISCHAEMIA
     Dosage: 40 MG QD - SUBCUTANEOUS
     Route: 058
     Dates: start: 20041115, end: 20041101
  5. LOVENOX [Suspect]
     Indication: ACUTE CORONARY SYNDROME
     Dosage: 60 MG Q12HR - SUBCUTANEOUS
     Route: 058
     Dates: start: 20041101, end: 20041118
  6. LOVENOX [Suspect]
     Indication: MYOCARDIAL ISCHAEMIA
     Dosage: 60 MG Q12HR - SUBCUTANEOUS
     Route: 058
     Dates: start: 20041101, end: 20041118
  7. LISINOPRIL [Concomitant]
  8. METOPROLOL SUCCINATE [Concomitant]
  9. NICOTINIC ACID [Concomitant]
  10. RAMIPRIL [Concomitant]
  11. INSULIN [Concomitant]
  12. ALENDRONATE SODIUM [Concomitant]
  13. ALBUTEROL [Concomitant]
  14. IPRATROPIUM/ALBUTEROL [Concomitant]

REACTIONS (4)
  - CARDIAC FAILURE [None]
  - HAEMOPTYSIS [None]
  - HAEMORRHAGE [None]
  - PULMONARY FIBROSIS [None]
